FAERS Safety Report 22258931 (Version 1)
Quarter: 2023Q2

REPORT INFORMATION
  Report Type: Other
  Country: CA (occurrence: CA)
  Receive Date: 20230427
  Receipt Date: 20230427
  Transmission Date: 20230722
  Serious: Yes (Other)
  Sender: FDA-Public Use
  Company Number: CA-PFIZER INC-202300170415

PATIENT
  Age: 64 Year
  Sex: Male

DRUGS (8)
  1. PAMIDRONATE DISODIUM [Suspect]
     Active Substance: PAMIDRONATE DISODIUM
     Indication: Myositis
     Dosage: UNK
     Route: 065
  2. PAMIDRONATE DISODIUM [Suspect]
     Active Substance: PAMIDRONATE DISODIUM
     Indication: Chronic graft versus host disease
  3. AZATHIOPRINE [Suspect]
     Active Substance: AZATHIOPRINE
     Indication: Myositis
     Dosage: 50 MG, 1X/DAY
     Route: 065
  4. AZATHIOPRINE [Suspect]
     Active Substance: AZATHIOPRINE
     Indication: Chronic graft versus host disease
  5. CALCITONIN SALMON [Suspect]
     Active Substance: CALCITONIN SALMON
     Indication: Myositis
     Dosage: UNK
     Route: 065
  6. CALCITONIN SALMON [Suspect]
     Active Substance: CALCITONIN SALMON
     Indication: Chronic graft versus host disease
  7. PREDNISONE [Suspect]
     Active Substance: PREDNISONE
     Indication: Myositis
     Dosage: 10 MG, 1X/DAY
     Route: 065
  8. PREDNISONE [Suspect]
     Active Substance: PREDNISONE
     Indication: Chronic graft versus host disease
     Dosage: 80 MG, 1X/DAY
     Route: 065

REACTIONS (2)
  - Hepatotoxicity [Unknown]
  - Off label use [Unknown]
